FAERS Safety Report 17211652 (Version 2)
Quarter: 2020Q2

REPORT INFORMATION
  Report Type: Report from Study
  Country: None (occurrence: US)
  Receive Date: 20191229
  Receipt Date: 20200526
  Transmission Date: 20200713
  Serious: Yes (Other)
  Sender: FDA-Public Use
  Company Number: US-ABBVIE-19P-163-3207580-00

PATIENT
  Sex: Female

DRUGS (5)
  1. IMBRUVICA [Suspect]
     Active Substance: IBRUTINIB
     Indication: CHRONIC LYMPHOCYTIC LEUKAEMIA
     Route: 048
     Dates: start: 20151001
  2. IMBRUVICA [Suspect]
     Active Substance: IBRUTINIB
     Dosage: 280 MG , EVERY OTHER DAY
     Route: 048
  3. IMBRUVICA [Suspect]
     Active Substance: IBRUTINIB
     Route: 048
  4. IMBRUVICA [Suspect]
     Active Substance: IBRUTINIB
     Indication: CHRONIC LYMPHOCYTIC LEUKAEMIA
     Dosage: 420 MG EVERY OTHER DAY
     Route: 048
  5. IMBRUVICA [Suspect]
     Active Substance: IBRUTINIB
     Route: 048

REACTIONS (3)
  - Localised infection [Recovered/Resolved]
  - Immunoglobulins abnormal [Recovering/Resolving]
  - Sinusitis [Recovered/Resolved]
